FAERS Safety Report 9217365 (Version 1)
Quarter: 2013Q2

REPORT INFORMATION
  Report Type: Spontaneous
  Country: US (occurrence: None)
  Receive Date: 20130404
  Receipt Date: 20130404
  Transmission Date: 20140414
  Serious: Yes (Disabling, Other)
  Sender: FDA-Public Use
  Company Number: 1302-245

PATIENT
  Age: 78 Year
  Sex: Female

DRUGS (9)
  1. EYLEA (AFLIBERCEPT) (INJECTION) (AFLIBERCEPT) [Suspect]
     Indication: AGE-RELATED MACULAR DEGENERATION
     Dosage: 1 IN 4 WK, INTRAVITREAL
     Dates: start: 20121116
  2. MULTIVITAMIN(VIGRAN) [Concomitant]
  3. VITAMIN D [Concomitant]
  4. REMICADE(INFLIXIMAB) [Concomitant]
  5. FOLIC ACID(FOLIC ACID) [Concomitant]
  6. METHOTREXATE(METHOTREXATE) [Concomitant]
  7. REFRESH TEARS(CARMELLOSE SODIUM) [Concomitant]
  8. XALATAN(LATANOPROST) [Concomitant]
  9. AZOPT(BRINZOLAMIDE) [Concomitant]

REACTIONS (2)
  - Endophthalmitis [None]
  - Visual acuity reduced [None]
